FAERS Safety Report 20958678 (Version 2)
Quarter: 2022Q2

REPORT INFORMATION
  Report Type: Report from Study
  Country: US (occurrence: US)
  Receive Date: 20220614
  Receipt Date: 20220615
  Transmission Date: 20220720
  Serious: Yes (Other)
  Sender: FDA-Public Use
  Company Number: US-TEVA-2022-US-2044717

PATIENT
  Age: 36 Year
  Sex: Female

DRUGS (1)
  1. AUSTEDO [Suspect]
     Active Substance: DEUTETRABENAZINE
     Indication: Dyskinesia
     Dosage: 24 MILLIGRAM DAILY;
     Route: 065
     Dates: start: 20210618, end: 20220603

REACTIONS (2)
  - Suicidal ideation [Recovered/Resolved]
  - Crying [Recovered/Resolved]
